FAERS Safety Report 20388018 (Version 1)
Quarter: 2022Q1

REPORT INFORMATION
  Report Type: Report from Study
  Country: US (occurrence: US)
  Receive Date: 20220128
  Receipt Date: 20220128
  Transmission Date: 20220423
  Serious: Yes (Hospitalization, Other)
  Sender: FDA-Public Use
  Company Number: US-TAKEDA-2022TUS005219

PATIENT
  Age: 36 Year
  Sex: Male

DRUGS (8)
  1. TEDUGLUTIDE [Suspect]
     Active Substance: TEDUGLUTIDE
     Indication: Short-bowel syndrome
     Dosage: 3.4 MILLIGRAM, QD
     Route: 065
     Dates: start: 20190418, end: 20190828
  2. TEDUGLUTIDE [Suspect]
     Active Substance: TEDUGLUTIDE
     Indication: Short-bowel syndrome
     Dosage: 3.4 MILLIGRAM, QD
     Route: 065
     Dates: start: 20190418, end: 20190828
  3. TEDUGLUTIDE [Suspect]
     Active Substance: TEDUGLUTIDE
     Indication: Short-bowel syndrome
     Dosage: 3.4 MILLIGRAM, QD
     Route: 065
     Dates: start: 20190418, end: 20190828
  4. TEDUGLUTIDE [Suspect]
     Active Substance: TEDUGLUTIDE
     Indication: Short-bowel syndrome
     Dosage: 3.4 MILLIGRAM, QD
     Route: 065
     Dates: start: 20190418, end: 20190828
  5. OXYCODONE [Concomitant]
     Active Substance: OXYCODONE
     Indication: Vomiting
     Dosage: 20 MILLIGRAM
     Route: 048
     Dates: start: 20200621, end: 20200623
  6. ONDANSETRON [Concomitant]
     Active Substance: ONDANSETRON
     Indication: Vomiting
     Dosage: 8 MILLIGRAM
     Route: 042
     Dates: start: 20200621, end: 20200621
  7. HYDROMORPHONE [Concomitant]
     Active Substance: HYDROMORPHONE
     Indication: Vomiting
     Dosage: 1 MILLIGRAM
     Route: 042
     Dates: start: 20200621, end: 20200621
  8. DICYCLOMINE [Concomitant]
     Active Substance: DICYCLOMINE HYDROCHLORIDE
     Indication: Vomiting
     Dosage: 20 MILLIGRAM
     Route: 048
     Dates: start: 20200621, end: 20200621

REACTIONS (1)
  - Staphylococcal bacteraemia [Recovered/Resolved]

NARRATIVE: CASE EVENT DATE: 20191202
